FAERS Safety Report 9339579 (Version 1)
Quarter: 2013Q2

REPORT INFORMATION
  Report Type: Spontaneous
  Country: DK (occurrence: None)
  Receive Date: 20130605
  Receipt Date: 20130605
  Transmission Date: 20140414
  Serious: Yes (Other)
  Sender: FDA-Public Use
  Company Number: FK201301782

PATIENT
  Age: 56 Year
  Sex: Female

DRUGS (17)
  1. CARBOPLATIN (MANUFACTURER UNKNOWN) (CARBOPLATIN) (CARBOPLATIN) [Suspect]
     Indication: PRODUCT USED FOR UNKNOWN INDICATION
  2. VINORELBINE [Suspect]
     Indication: PRODUCT USED FOR UNKNOWN INDICATION
     Dosage: 50 MG, INTRAVENOUS (NOT OTHERWISE SPECIFIED)
     Route: 042
     Dates: start: 20051209
  3. HERCEPTIN [Suspect]
     Indication: PRODUCT USED FOR UNKNOWN INDICATION
     Dosage: 500 MG, INTRAVENOUS (NOT OTHERWISE SPECIFIED)
     Route: 042
     Dates: start: 20041122
  4. XELODA [Suspect]
  5. AVASTATIN [Suspect]
     Indication: PRODUCT USED FOR UNKNOWN INDICATION
  6. TAXOTERE [Suspect]
     Indication: PRODUCT USED FOR UNKNOWN INDICATION
     Dosage: 130 MG, INTRAVENOUS (NOT OTHERWISE SPECIFIED)
     Route: 042
     Dates: start: 20041123
  7. TAXOL [Suspect]
     Indication: PRODUCT USED FOR UNKNOWN INDICATION
  8. TYVERB [Suspect]
     Indication: PRODUCT USED FOR UNKNOWN INDICATION
     Dates: start: 20090925
  9. TAVEGYL (CLEMASTIN FUMART, FUMARSYRE, CLEMASTIN) (CLEMASTINFUMARAT, FUMARSYRE, CLEMASTIN) [Concomitant]
  10. ZANTAC (RANITDINEHYDROCHLORIDE (RANITIDINHYDROCHLORID) [Concomitant]
  11. SOLU-MEDROL (METHYLPREDNISOLONNATRIUMSUCCINATE, METHYLEPREDNISOLONSUCCINAT) (METHYLPREDNISOLONNATRIUMSUCCINAT, METHYLPREDNISOLONSUCCINAT) [Concomitant]
  12. TEMESTA (LORAZEPAM) (LORAZEPAM) [Concomitant]
  13. PRENDISOLON (PERDINSOLON) (PREDNISOLON) [Concomitant]
  14. KYTRIL (GRANISETRON, GRANISETRONHYDROCHLORID) (GRANISETRON, GRANISETRONHYDROCHLORID) [Concomitant]
  15. EMPERAL (METOCLOPRAMIHYDROCHLORID (METOCLOPRAMIDHYDROCHLORID) [Concomitant]
  16. ZOFRAN (ONDANSETRONHYDROCHLORIDDIHYRDRAT, ONDANSETRON) (ONDANSETRONNHYDROCHLORIDDIHYDRAT, ONDANSETRON) [Concomitant]
  17. CORODIL (ENALAPRILMALEAT) (ENALAPRILMALEAT) [Concomitant]

REACTIONS (37)
  - Ejection fraction decreased [None]
  - Paraesthesia [None]
  - Dysaesthesia [None]
  - Nausea [None]
  - Abdominal discomfort [None]
  - Headache [None]
  - Influenza like illness [None]
  - Dysgeusia [None]
  - Dyspnoea [None]
  - Heart rate irregular [None]
  - Dry mouth [None]
  - Constipation [None]
  - Nail disorder [None]
  - Fluid retention [None]
  - Lymphoedema [None]
  - Diarrhoea [None]
  - Cardiovascular disorder [None]
  - Nervous system disorder [None]
  - Skin ulcer [None]
  - Chest pain [None]
  - Dyspnoea [None]
  - Malaise [None]
  - Feeling hot [None]
  - Neutropenia [None]
  - Rash pustular [None]
  - Sleep disorder [None]
  - Myalgia [None]
  - Skin fissures [None]
  - Nasal ulcer [None]
  - Cough [None]
  - Vulvovaginal dryness [None]
  - Palmar-plantar erythrodysaesthesia syndrome [None]
  - Erythema [None]
  - Swelling [None]
  - Calcium ionised increased [None]
  - Skin fissures [None]
  - Lip swelling [None]
